FAERS Safety Report 4494502-X (Version None)
Quarter: 2004Q4

REPORT INFORMATION
  Report Type: 
  Country: None (occurrence: None)
  Receive Date: 20041102
  Receipt Date: 20041020
  Transmission Date: 20050328
  Serious: Yes (Other)
  Sender: FDA-Public Use
  Company Number: 2004240719GB

PATIENT
  Age: 72 Year
  Sex: Male
  Weight: 101.8 kg

DRUGS (2)
  1. GENOTROPIN [Suspect]
     Indication: HYPOPITUITARISM
     Dosage: 3 MG, QD, SUBCUTANEOUS
     Route: 058
     Dates: start: 19971001
  2. TESTOSTERONE [Suspect]
     Indication: HORMONE REPLACEMENT THERAPY
     Dates: end: 20040726

REACTIONS (1)
  - PROSTATE CANCER [None]
